FAERS Safety Report 21013270 (Version 1)
Quarter: 2022Q2

REPORT INFORMATION
  Report Type: Spontaneous
  Country: US (occurrence: US)
  Receive Date: 20220627
  Receipt Date: 20220627
  Transmission Date: 20220721
  Serious: No
  Sender: FDA-Public Use
  Company Number: US-SA-SAC20220620001995

PATIENT
  Age: 72 Year
  Sex: Male

DRUGS (20)
  1. DUPIXENT [Suspect]
     Active Substance: DUPILUMAB
     Indication: Dermatitis atopic
     Dosage: 300 MG, QOW
     Route: 058
     Dates: start: 20220407, end: 2022
  2. SINGULAIR [Concomitant]
     Active Substance: MONTELUKAST SODIUM
  3. PYRIDOXINE HYDROCHLORIDE [Concomitant]
     Active Substance: PYRIDOXINE HYDROCHLORIDE
  4. TRIAMCINOLONE ACETONIDE [Concomitant]
     Active Substance: TRIAMCINOLONE ACETONIDE
     Dosage: 50MG
  5. ALPHA LIPOIC ACID [Concomitant]
     Active Substance: .ALPHA.-LIPOIC ACID
  6. VITAMIN E [Concomitant]
     Active Substance: .ALPHA.-TOCOPHEROL
  7. TAMSULOSIN HYDROCHLORIDE [Concomitant]
     Active Substance: TAMSULOSIN HYDROCHLORIDE
  8. VITAMIN D3 [Concomitant]
     Active Substance: CHOLECALCIFEROL
  9. LATANOPROST [Concomitant]
     Active Substance: LATANOPROST
     Dosage: LATANOPROST 0.005 % DROPS
  10. SIMVASTATIN [Concomitant]
     Active Substance: SIMVASTATIN
  11. NIFEDIPINE [Concomitant]
     Active Substance: NIFEDIPINE
     Dosage: NIFEDIPINE ER 90 MG TABLET SA
  12. ASPIRIN [Concomitant]
     Active Substance: ASPIRIN
     Dosage: ASPIRIN EC 81 MG TABLET DR
  13. PREDNISONE [Concomitant]
     Active Substance: PREDNISONE
  14. DESONIDE [Concomitant]
     Active Substance: DESONIDE
  15. HYDROCORTISONE [Concomitant]
     Active Substance: HYDROCORTISONE
  16. CLEOCIN T [Concomitant]
     Active Substance: CLINDAMYCIN PHOSPHATE
  17. FLUOCINOLONE ACETONIDE [Concomitant]
     Active Substance: FLUOCINOLONE ACETONIDE
  18. CLOBETASOL PROPIONATE [Concomitant]
     Active Substance: CLOBETASOL PROPIONATE
  19. ASCORBIC ACID [Concomitant]
     Active Substance: ASCORBIC ACID
  20. CERAVE HEALING [Concomitant]
     Active Substance: PETROLATUM

REACTIONS (1)
  - Blood disorder [Unknown]

NARRATIVE: CASE EVENT DATE: 20220101
